FAERS Safety Report 5622439-9 (Version None)
Quarter: 2008Q1

REPORT INFORMATION
  Report Type: 
  Country: None (occurrence: None)
  Receive Date: 20080114
  Receipt Date: 20070801
  Transmission Date: 20080703
  Serious: Yes (Other)
  Sender: FDA-Public Use
  Company Number: A03200704953

PATIENT
  Age: 78 Year
  Sex: Female

DRUGS (11)
  1. PLAVIX [Suspect]
     Indication: STENT PLACEMENT
     Dosage: 75 MG QD - ORAL
     Route: 048
     Dates: start: 20070101, end: 20070802
  2. ACETYLSALICYLIC ACID SRT [Concomitant]
  3. LEVOTHYROXINE SODIUM [Concomitant]
  4. OLMESARTAN MEDOXOMIL [Concomitant]
  5. FUROSEMIDE [Concomitant]
  6. PIOGLITAZONE HCL [Concomitant]
  7. ENALAPRIL MALEATE [Concomitant]
  8. METOPROLOL SUCCINATE [Concomitant]
  9. PREGABALIN [Concomitant]
  10. ACETAMINOPHEN+OXYCODONE HYDROCHLORIDE [Concomitant]
  11. EZETIMIBE [Concomitant]

REACTIONS (3)
  - BLOOD IRON DECREASED [None]
  - GASTRIC ULCER HAEMORRHAGE [None]
  - MYOCARDIAL INFARCTION [None]
